FAERS Safety Report 6873363-5 (Version None)
Quarter: 2010Q3

REPORT INFORMATION
  Report Type: 
  Country: None (occurrence: None)
  Receive Date: 20100723
  Receipt Date: 20090302
  Transmission Date: 20110219
  Serious: No
  Sender: FDA-Public Use
  Company Number: US-PFIZER INC-2009151205

PATIENT
  Sex: Female
  Weight: 72.121 kg

DRUGS (7)
  1. CHANTIX [Suspect]
     Dosage: 1 MG, 2X/DAY
     Route: 048
     Dates: start: 20081230
  2. ZOCOR [Concomitant]
     Dosage: 40 MG, UNK
  3. PAXIL CR [Concomitant]
     Dosage: UNK
  4. LAMICTAL [Concomitant]
  5. KLONOPIN [Concomitant]
     Dosage: UNK
  6. IBUPROFEN [Concomitant]
     Indication: ARTHROPATHY
     Dosage: UNK
  7. DOXYCYCLINE HYCLATE [Concomitant]
     Dosage: UNK

REACTIONS (4)
  - HEADACHE [None]
  - INCORRECT DOSE ADMINISTERED [None]
  - NAUSEA [None]
  - WITHDRAWAL SYNDROME [None]
